FAERS Safety Report 7592849-1 (Version None)
Quarter: 2011Q3

REPORT INFORMATION
  Report Type: 
  Country: None (occurrence: None)
  Receive Date: 20110706
  Receipt Date: 20110705
  Transmission Date: 20111222
  Serious: Yes (Other)
  Sender: FDA-Public Use
  Company Number: US-PFIZER INC-2011150128

PATIENT
  Sex: Female
  Weight: 86.168 kg

DRUGS (6)
  1. DILANTIN [Suspect]
     Dosage: 100 MG, 2X/DAY
     Route: 048
  2. LISINOPRIL [Concomitant]
     Indication: HYPERTENSION
     Dosage: 40 MG, DAILY
  3. PHENOBARBITAL [Concomitant]
     Indication: CONVULSION
     Dosage: 60 MG, 2X/DAY
  4. DILANTIN [Suspect]
     Dosage: UNK
     Route: 048
     Dates: end: 20010101
  5. DILANTIN [Suspect]
     Indication: CONVULSION
     Dosage: UNK
     Route: 048
     Dates: start: 19750101
  6. TOPROL-XL [Concomitant]
     Indication: HYPERTENSION
     Dosage: 100 MG, DAILY

REACTIONS (2)
  - GINGIVAL HYPERPLASIA [None]
  - CONVULSION [None]
